FAERS Safety Report 19253442 (Version 1)
Quarter: 2021Q2

REPORT INFORMATION
  Report Type: Spontaneous
  Country: AT (occurrence: AT)
  Receive Date: 20210513
  Receipt Date: 20210513
  Transmission Date: 20210717
  Serious: Yes (Hospitalization)
  Sender: FDA-Public Use
  Company Number: AT-TEVA-2021-AT-1909998

PATIENT
  Age: 56 Year
  Sex: Female
  Weight: 70 kg

DRUGS (10)
  1. VENLAFAXINE [Suspect]
     Active Substance: VENLAFAXINE HYDROCHLORIDE
     Indication: MAJOR DEPRESSION
     Route: 065
  2. S?KETAMINE [Suspect]
     Active Substance: ESKETAMINE
     Indication: MAJOR DEPRESSION
     Dosage: ADMINISTERED 2?3 TIMES
     Route: 041
  3. MIRTAZAPINE. [Suspect]
     Active Substance: MIRTAZAPINE
     Indication: MAJOR DEPRESSION
     Route: 065
  4. ARIPIPRAZOLE. [Suspect]
     Active Substance: ARIPIPRAZOLE
     Indication: MAJOR DEPRESSION
     Dosage: 20 MILLIGRAM DAILY;
     Route: 065
  5. ARIPIPRAZOLE. [Suspect]
     Active Substance: ARIPIPRAZOLE
     Indication: PSYCHOTIC SYMPTOM
  6. IOFLUPANE?123I [Interacting]
     Active Substance: IOFLUPANE I-123
     Indication: DIAGNOSTIC PROCEDURE
     Route: 040
  7. BUPROPION. [Suspect]
     Active Substance: BUPROPION
     Indication: MAJOR DEPRESSION
     Dosage: 150 MILLIGRAM DAILY;
     Route: 065
  8. VORTIOXETINE. [Suspect]
     Active Substance: VORTIOXETINE
     Indication: MAJOR DEPRESSION
     Dosage: 10 MILLIGRAM DAILY;
     Route: 065
  9. S?KETAMINE [Suspect]
     Active Substance: ESKETAMINE
     Indication: PSYCHOTIC SYMPTOM
  10. BUPROPION. [Interacting]
     Active Substance: BUPROPION
     Dosage: 300 MILLIGRAM DAILY;
     Route: 065

REACTIONS (3)
  - Drug interaction [Recovered/Resolved]
  - Drug ineffective [Unknown]
  - False positive investigation result [Recovered/Resolved]
